FAERS Safety Report 15133184 (Version 2)
Quarter: 2018Q3

REPORT INFORMATION
  Report Type: Report from Study
  Country: None (occurrence: US)
  Receive Date: 20180712
  Receipt Date: 20180716
  Transmission Date: 20181010
  Serious: Yes (Death, Hospitalization)
  Sender: FDA-Public Use
  Company Number: US-BAUSCH-BL-2018-019144

PATIENT
  Age: 63 Year
  Sex: Male

DRUGS (1)
  1. XIFAXAN [Suspect]
     Active Substance: RIFAXIMIN
     Indication: LIVER DISORDER
     Dosage: TOOK ABOUT 10 TABLETS
     Route: 048

REACTIONS (4)
  - Renal failure [Fatal]
  - Hepatic cirrhosis [Fatal]
  - Haematemesis [Unknown]
  - Dysstasia [Unknown]

NARRATIVE: CASE EVENT DATE: 20180703
